FAERS Safety Report 15787330 (Version 1)
Quarter: 2019Q1

REPORT INFORMATION
  Report Type: Spontaneous
  Country: US (occurrence: US)
  Receive Date: 20190103
  Receipt Date: 20190103
  Transmission Date: 20190417
  Serious: Yes (Hospitalization)
  Sender: FDA-Public Use
  Company Number: US-PACIRA PHARMACEUTICALS, INC.-2018EXPUS00720

PATIENT

DRUGS (1)
  1. EXPAREL [Suspect]
     Active Substance: BUPIVACAINE
     Indication: SHOULDER OPERATION
     Dosage: 10 ML, SINGLE
     Dates: start: 20181227, end: 20181227

REACTIONS (2)
  - Dyspnoea [Unknown]
  - Diaphragmatic paralysis [Recovered/Resolved]

NARRATIVE: CASE EVENT DATE: 20181229
